FAERS Safety Report 15402029 (Version 1)
Quarter: 2018Q3

REPORT INFORMATION
  Report Type: Spontaneous
  Country: US (occurrence: US)
  Receive Date: 20180915
  Receipt Date: 20180915
  Transmission Date: 20181010
  Serious: Yes (Hospitalization)
  Sender: FDA-Public Use
  Company Number: None

PATIENT
  Age: 43 Year
  Sex: Male
  Weight: 157.5 kg

DRUGS (5)
  1. LOSARTAN TABS 50MG [Suspect]
     Active Substance: LOSARTAN
     Indication: HYPERTENSION
     Dosage: ?          QUANTITY:1 TABLET(S);?
     Route: 048
     Dates: start: 20171101, end: 20180228
  2. GLIPIZIDE. [Concomitant]
     Active Substance: GLIPIZIDE
  3. LAMICTAL [Concomitant]
     Active Substance: LAMOTRIGINE
  4. LOSARTEN [Concomitant]
     Active Substance: LOSARTAN
  5. IBUPROFEN. [Concomitant]
     Active Substance: IBUPROFEN

REACTIONS (5)
  - Impaired driving ability [None]
  - Headache [None]
  - Drug ineffective [None]
  - Cerebrovascular accident [None]
  - Recalled product [None]
